FAERS Safety Report 6242920-1 (Version None)
Quarter: 2009Q2

REPORT INFORMATION
  Report Type: 
  Country: None (occurrence: None)
  Receive Date: 20090624
  Receipt Date: 20090617
  Transmission Date: 20091009
  Serious: Yes (Hospitalization, Other)
  Sender: FDA-Public Use
  Company Number: US-BAYER-200916581NA

PATIENT
  Age: 21 Year
  Sex: Female
  Weight: 63 kg

DRUGS (3)
  1. MIRENA [Suspect]
     Indication: CONTRACEPTION
     Dosage: CONTINUOUS
     Route: 015
     Dates: start: 20090217, end: 20090323
  2. MIRENA [Suspect]
     Dosage: CONTINUOUS DELIVERY
     Route: 015
  3. VITAMIN TAB [Concomitant]

REACTIONS (8)
  - ABDOMINAL PAIN [None]
  - DIARRHOEA [None]
  - IUCD COMPLICATION [None]
  - IUD MIGRATION [None]
  - PAINFUL DEFAECATION [None]
  - PELVIC PAIN [None]
  - PROCEDURAL PAIN [None]
  - VOMITING [None]
